FAERS Safety Report 6795130-3 (Version None)
Quarter: 2010Q2

REPORT INFORMATION
  Report Type: 
  Country: None (occurrence: None)
  Receive Date: 20100625
  Receipt Date: 20100625
  Transmission Date: 20101027
  Serious: Yes (Hospitalization, Other)
  Sender: FDA-Public Use
  Company Number: PHHO2008JP13823

PATIENT
  Sex: Male
  Weight: 55 kg

DRUGS (3)
  1. AFINITOR [Suspect]
     Indication: PANCREATIC NEUROENDOCRINE TUMOUR
     Dosage: 10 MG DAILY
     Route: 048
     Dates: start: 20080331, end: 20081118
  2. MINOCYCLINE HCL [Concomitant]
     Indication: PARONYCHIA
  3. ACHROMYCIN [Concomitant]
     Indication: PARONYCHIA
     Dosage: UNK

REACTIONS (17)
  - ABDOMINAL PAIN [None]
  - ASCITES [None]
  - CENTRAL VENOUS CATHETERISATION [None]
  - CONDITION AGGRAVATED [None]
  - FLATULENCE [None]
  - FLUID RETENTION [None]
  - GASTROINTESTINAL TUBE INSERTION [None]
  - HEPATIC LESION [None]
  - HYPERTROPHY [None]
  - ILEUS [None]
  - INTESTINAL DILATATION [None]
  - INTESTINAL STENT INSERTION [None]
  - PARONYCHIA [None]
  - PERITONEAL LESION [None]
  - PUS IN STOOL [None]
  - THERAPEUTIC EMBOLISATION [None]
  - VOMITING [None]
